FAERS Safety Report 6479928-7 (Version None)
Quarter: 2009Q4

REPORT INFORMATION
  Report Type: 
  Country: None (occurrence: None)
  Receive Date: 20091208
  Receipt Date: 20091124
  Transmission Date: 20100525
  Serious: Yes (Hospitalization)
  Sender: FDA-Public Use
  Company Number: JP-SANOFI-AVENTIS-2009SA002158

PATIENT
  Age: 55 Year
  Sex: Male

DRUGS (1)
  1. ARAVA [Suspect]
     Route: 048

REACTIONS (3)
  - ANAPHYLACTIC REACTION [None]
  - DELIRIUM [None]
  - DRUG ERUPTION [None]
